FAERS Safety Report 9930910 (Version 2)
Quarter: 2014Q1

REPORT INFORMATION
  Report Type: Spontaneous
  Country: US (occurrence: US)
  Receive Date: 20140227
  Receipt Date: 20140324
  Transmission Date: 20141002
  Serious: Yes (Other)
  Sender: FDA-Public Use
  Company Number: US-AMGEN-USASP2014006876

PATIENT
  Age: 43 Year
  Sex: Female
  Weight: 52.15 kg

DRUGS (1)
  1. ENBREL [Suspect]
     Indication: RHEUMATOID ARTHRITIS
     Dosage: 50 MG, QWK
     Route: 058
     Dates: start: 201401

REACTIONS (4)
  - Vision blurred [Unknown]
  - Visual impairment [Unknown]
  - Hypoaesthesia [Unknown]
  - Paraesthesia [Unknown]
